FAERS Safety Report 9735481 (Version 3)
Quarter: 2015Q3

REPORT INFORMATION
  Report Type: Spontaneous
  Country: US (occurrence: US)
  Receive Date: 20131206
  Receipt Date: 20150804
  Transmission Date: 20151125
  Serious: No
  Sender: FDA-Public Use
  Company Number: US-GILEAD-2009-0023265

PATIENT
  Age: 83 Year
  Sex: Female

DRUGS (16)
  1. LETAIRIS [Suspect]
     Active Substance: AMBRISENTAN
     Indication: PULMONARY ARTERIAL HYPERTENSION
     Route: 048
     Dates: start: 20090701
  2. DRAMAMINE [Concomitant]
     Active Substance: DIMENHYDRINATE
  3. FUROSEMIDE. [Concomitant]
     Active Substance: FUROSEMIDE
  4. NASONEX [Concomitant]
     Active Substance: MOMETASONE FUROATE
  5. CITRUCEL PACKET [Concomitant]
  6. CENTRUM SILVER [Concomitant]
     Active Substance: VITAMINS
  7. COUMADIN [Concomitant]
     Active Substance: WARFARIN SODIUM
  8. NITROGLYCERIN. [Concomitant]
     Active Substance: NITROGLYCERIN
  9. POTASSIUM CHLORIDE. [Concomitant]
     Active Substance: POTASSIUM CHLORIDE
  10. PREMARIN [Concomitant]
     Active Substance: ESTROGENS, CONJUGATED
  11. LOPID [Concomitant]
     Active Substance: GEMFIBROZIL
  12. AVAPRO [Concomitant]
     Active Substance: IRBESARTAN
  13. NEXIUM [Concomitant]
     Active Substance: ESOMEPRAZOLE MAGNESIUM
  14. METOPROLOL [Concomitant]
     Active Substance: METOPROLOL
  15. MIRAPEX [Concomitant]
     Active Substance: PRAMIPEXOLE DIHYDROCHLORIDE
  16. LEVOTHYROXINE. [Concomitant]
     Active Substance: LEVOTHYROXINE

REACTIONS (2)
  - Rash [Unknown]
  - Oedema [Unknown]
